FAERS Safety Report 15438612 (Version 1)
Quarter: 2018Q3

REPORT INFORMATION
  Report Type: Spontaneous
  Country: US (occurrence: US)
  Receive Date: 20180928
  Receipt Date: 20180928
  Transmission Date: 20181010
  Serious: No
  Sender: FDA-Public Use
  Company Number: US-BION-006835

PATIENT
  Age: 83 Year
  Sex: Female
  Weight: 51.71 kg

DRUGS (7)
  1. CALCIUM/COLECALCIFEROL [Concomitant]
     Indication: SUPPLEMENTATION THERAPY
     Dosage: 1200 UNITS/DAY
  2. CARVEDILOL/CARVEDILOL HYDROCHLODRIDE [Concomitant]
     Indication: CARDIAC DISORDER
     Dosage: 3.125MG/2X DAY
  3. ERGOCALCIFEROL. [Concomitant]
     Active Substance: ERGOCALCIFEROL
     Indication: SUPPLEMENTATION THERAPY
     Dosage: 200 UNITS/DAY
  4. IMODIUM A?D [Suspect]
     Active Substance: LOPERAMIDE HYDROCHLORIDE
     Indication: DIARRHOEA
     Dosage: 1 LIQUID GEL 2 TIMES?2 LIQUID GEL AS NEEDED
     Route: 048
     Dates: start: 20171211
  5. ACETYLSALICYLIC ACID [Concomitant]
     Active Substance: ASPIRIN
     Indication: BLOOD DISORDER
  6. PROLIA [Concomitant]
     Active Substance: DENOSUMAB
     Indication: OSTEOPOROSIS
  7. LISINOPRIL. [Concomitant]
     Active Substance: LISINOPRIL
     Indication: CARDIAC DISORDER
     Dosage: 10MG / 2X DAY

REACTIONS (4)
  - Drug ineffective [Not Recovered/Not Resolved]
  - Intentional product misuse [Not Recovered/Not Resolved]
  - Incorrect dose administered [Not Recovered/Not Resolved]
  - Drug prescribing error [Not Recovered/Not Resolved]
